FAERS Safety Report 9517549 (Version 1)
Quarter: 2013Q3

REPORT INFORMATION
  Report Type: Spontaneous
  Country: US (occurrence: US)
  Receive Date: 20130911
  Receipt Date: 20130911
  Transmission Date: 20140515
  Serious: No
  Sender: FDA-Public Use
  Company Number: US-BAYER-2013-109915

PATIENT
  Age: 65 Year
  Sex: Male
  Weight: 67.12 kg

DRUGS (1)
  1. ALEVE GELCAPS [Suspect]
     Indication: ARTHRITIS
     Dosage: 1 DF, TID
     Route: 048
     Dates: start: 20130829, end: 20130830

REACTIONS (1)
  - Abdominal discomfort [Recovered/Resolved]
